FAERS Safety Report 6421676-3 (Version None)
Quarter: 2009Q4

REPORT INFORMATION
  Report Type: 
  Country: None (occurrence: None)
  Receive Date: 20091029
  Receipt Date: 20091029
  Transmission Date: 20100525
  Serious: Yes (Other)
  Sender: FDA-Public Use
  Company Number: None

PATIENT
  Age: 67 Year
  Sex: Female
  Weight: 65.7716 kg

DRUGS (1)
  1. ADVAIR HFA [Suspect]
     Indication: CHRONIC OBSTRUCTIVE PULMONARY DISEASE
     Dosage: 1 PUFF BY MOUTH 2 TIMES A DAY PO
     Route: 048
     Dates: start: 20090406, end: 20091001

REACTIONS (3)
  - DENTAL CARIES [None]
  - ENAMEL ANOMALY [None]
  - OSTEOPENIA [None]
